FAERS Safety Report 12321167 (Version 1)
Quarter: 2016Q2

REPORT INFORMATION
  Report Type: Spontaneous
  Country: AT (occurrence: AT)
  Receive Date: 20160502
  Receipt Date: 20160502
  Transmission Date: 20160815
  Serious: Yes (Other)
  Sender: FDA-Public Use
  Company Number: AT-BRISTOL-MYERS SQUIBB COMPANY-BMS-2016-000163

PATIENT

DRUGS (5)
  1. OPDIVO [Suspect]
     Active Substance: NIVOLUMAB
     Indication: PRODUCT USED FOR UNKNOWN INDICATION
     Dosage: 228 MG, UNK
     Route: 065
     Dates: start: 20151116
  2. OPDIVO [Suspect]
     Active Substance: NIVOLUMAB
     Dosage: 218.1 MG, UNK
     Route: 065
     Dates: start: 20160118
  3. OPDIVO [Suspect]
     Active Substance: NIVOLUMAB
     Dosage: 225 MG, UNK
     Route: 065
     Dates: start: 20151130
  4. OPDIVO [Suspect]
     Active Substance: NIVOLUMAB
     Dosage: 219.3 MG, UNK
     Route: 065
     Dates: start: 20151221
  5. OPDIVO [Suspect]
     Active Substance: NIVOLUMAB
     Dosage: 222.3 MG, UNK
     Route: 065
     Dates: start: 20160104

REACTIONS (2)
  - Foetal growth restriction [Unknown]
  - Exposure via father [Unknown]
